FAERS Safety Report 13567007 (Version 1)
Quarter: 2017Q2

REPORT INFORMATION
  Report Type: Spontaneous
  Country: US (occurrence: US)
  Receive Date: 20170519
  Receipt Date: 20170519
  Transmission Date: 20170830
  Serious: No
  Sender: FDA-Public Use
  Company Number: None

PATIENT
  Age: 53 Year
  Sex: Female
  Weight: 96.75 kg

DRUGS (15)
  1. TRICOR [Concomitant]
     Active Substance: FENOFIBRATE
  2. ATENOLOL. [Concomitant]
     Active Substance: ATENOLOL
  3. FISH OIL [Concomitant]
     Active Substance: FISH OIL
  4. MULTIVITAMIN [Concomitant]
     Active Substance: VITAMINS
  5. LOSARTAN. [Concomitant]
     Active Substance: LOSARTAN
  6. PRAVASTATIN. [Concomitant]
     Active Substance: PRAVASTATIN
  7. ZOLPIDEM [Concomitant]
     Active Substance: ZOLPIDEM\ZOLPIDEM TARTRATE
  8. GABAPENTIN. [Concomitant]
     Active Substance: GABAPENTIN
  9. PROBIOTIC CAPSULE [Concomitant]
  10. L-THYROXINE [Concomitant]
     Active Substance: LEVOTHYROXINE
  11. MAGNESIUM MALATE [Concomitant]
  12. LOSARTAN 50 MG [Suspect]
     Active Substance: LOSARTAN
     Indication: HYPERTENSION
     Dosage: ?          QUANTITY:90 TABLET(S);?
     Route: 048
     Dates: start: 20170430, end: 20170516
  13. CIMETIDINE [Concomitant]
     Active Substance: CIMETIDINE
  14. CYCLOBENZAPRINE. [Concomitant]
     Active Substance: CYCLOBENZAPRINE
  15. BLACK COHOSH [Concomitant]
     Active Substance: BLACK COHOSH

REACTIONS (3)
  - Blood pressure increased [None]
  - Product quality issue [None]
  - Blood pressure inadequately controlled [None]

NARRATIVE: CASE EVENT DATE: 20170509
